FAERS Safety Report 19797471 (Version 1)
Quarter: 2021Q3

REPORT INFORMATION
  Report Type: Spontaneous
  Country: GR (occurrence: GR)
  Receive Date: 20210907
  Receipt Date: 20210907
  Transmission Date: 20211014
  Serious: Yes (Hospitalization)
  Sender: FDA-Public Use
  Company Number: GR-BAYER-2021-204511

PATIENT
  Sex: Female

DRUGS (3)
  1. CIPROXIN 500 MG [Suspect]
     Active Substance: CIPROFLOXACIN
     Dosage: 500 MG
     Route: 048
  2. FLAGYL [Concomitant]
     Active Substance: METRONIDAZOLE\METRONIDAZOLE HYDROCHLORIDE
  3. CIPROXIN [Suspect]
     Active Substance: CIPROFLOXACIN

REACTIONS (1)
  - Colon cancer [None]

NARRATIVE: CASE EVENT DATE: 202106
